FAERS Safety Report 10207395 (Version 9)
Quarter: 2017Q2

REPORT INFORMATION
  Report Type: Other
  Country: IT (occurrence: IT)
  Receive Date: 20140530
  Receipt Date: 20170411
  Transmission Date: 20170829
  Serious: Yes (Death, Life-Threatening, Other)
  Sender: FDA-Public Use
  Company Number: IT-MPIJNJ-2014JNJ003637

PATIENT
  Age: 86 Year
  Sex: Male
  Weight: 67 kg

DRUGS (23)
  1. ATORVASTATIN CALCIUM. [Concomitant]
     Active Substance: ATORVASTATIN CALCIUM
     Indication: HYPERCHOLESTEROLAEMIA
     Dosage: 20 MG, QD
     Route: 048
     Dates: start: 20030201, end: 20140411
  2. CALCIUM [Concomitant]
     Active Substance: CALCIUM
     Indication: HYPOCALCAEMIA
     Dosage: 1000 MG, QD
     Route: 048
     Dates: start: 20130918, end: 20140411
  3. LEVOXACIN [Concomitant]
     Active Substance: LEVOFLOXACIN
     Indication: COUGH
     Dosage: 500 MG, QD
     Route: 048
     Dates: start: 20140410
  4. VELCADE [Suspect]
     Active Substance: BORTEZOMIB
     Dosage: 0.7 MG/M2, 1/WEEK
     Route: 058
     Dates: start: 20140411
  5. DEXAMETHASONE. [Suspect]
     Active Substance: DEXAMETHASONE
     Dosage: 16 MG, MONTHLY
     Route: 048
     Dates: start: 20130319, end: 20130429
  6. DEXAMETHASONE. [Suspect]
     Active Substance: DEXAMETHASONE
     Dosage: 8 MG, MONTHLY
     Route: 048
     Dates: start: 20130430, end: 20130507
  7. REVLIMID [Suspect]
     Active Substance: LENALIDOMIDE
     Indication: PLASMA CELL MYELOMA
     Dosage: 10 MG, QD
     Route: 048
     Dates: start: 20130715, end: 20140404
  8. REVLIMID [Suspect]
     Active Substance: LENALIDOMIDE
     Dosage: 10 MG, QD
     Route: 048
     Dates: start: 20140411
  9. NITRODERM MATRIX [Concomitant]
     Active Substance: NITROGLYCERIN
     Indication: MYOCARDIAL INFARCTION
     Dosage: 10 MG, QD
     Route: 062
     Dates: start: 20130201
  10. FENTANIL [Concomitant]
     Active Substance: FENTANYL
     Dosage: 2.857 MG, 1/WEEK
     Route: 048
     Dates: start: 20110829
  11. ASCRIPTIN [Concomitant]
     Active Substance: ASPIRIN
     Indication: HYPERTENSION
     Dosage: 150 MG, QD
     Route: 048
     Dates: start: 20030101
  12. ALKERAN [Suspect]
     Active Substance: MELPHALAN
     Indication: PLASMA CELL MYELOMA
     Dosage: 10 MG, UNK
     Route: 048
     Dates: start: 20110829, end: 20120331
  13. FINASTERIDE. [Concomitant]
     Active Substance: FINASTERIDE
     Indication: BENIGN PROSTATIC HYPERPLASIA
     Dosage: 5 MG, QD
     Route: 048
     Dates: start: 20030201
  14. DEXAMETHASONE. [Suspect]
     Active Substance: DEXAMETHASONE
     Indication: PLASMA CELL MYELOMA
     Dosage: 32 MG, MONTHLY
     Route: 048
     Dates: start: 20130212, end: 20130318
  15. BISOPROLOL HEMIFUMARATE [Concomitant]
     Active Substance: BISOPROLOL FUMARATE
     Indication: HYPERTENSION
     Dosage: 5 MG, QD
     Route: 048
     Dates: start: 20030101
  16. VELCADE [Suspect]
     Active Substance: BORTEZOMIB
     Indication: PLASMA CELL MYELOMA
     Dosage: 1 MG/M2, 1/WEEK
     Route: 058
     Dates: start: 20130212, end: 20130430
  17. DEXAMETHASONE. [Suspect]
     Active Substance: DEXAMETHASONE
     Dosage: 4 MG, 2/WEEK
     Route: 048
     Dates: start: 20130715
  18. DIBASE [Concomitant]
     Active Substance: CHOLECALCIFEROL
     Indication: VITAMIN D DEFICIENCY
     Dosage: UNK, 1/WEEK
     Route: 048
     Dates: start: 20130212, end: 20140411
  19. VELCADE [Suspect]
     Active Substance: BORTEZOMIB
     Dosage: 0.7 MG/M2, 1/WEEK
     Route: 058
     Dates: start: 20130430, end: 20130507
  20. OMEPRAZOLE. [Concomitant]
     Active Substance: OMEPRAZOLE
     Indication: PROPHYLAXIS
     Dosage: 40 MG, QD
     Route: 048
     Dates: start: 20130212
  21. RAMIPRIL. [Concomitant]
     Active Substance: RAMIPRIL
     Indication: HYPERTENSION
     Dosage: 5 MG, QD
     Route: 048
     Dates: start: 20030101
  22. FOLINIC ACID [Concomitant]
     Active Substance: LEUCOVORIN
     Indication: VITAMIN C DEFICIENCY
     Dosage: 5 MG, UNK
     Route: 048
     Dates: start: 20030212
  23. FENTANIL [Concomitant]
     Active Substance: FENTANYL
     Indication: PAIN
     Dosage: 100 MG, UNK
     Route: 062
     Dates: start: 20110829, end: 20140411

REACTIONS (3)
  - Lung neoplasm malignant [Not Recovered/Not Resolved]
  - Peripheral sensory neuropathy [Unknown]
  - Metastatic neoplasm [Fatal]

NARRATIVE: CASE EVENT DATE: 20130409
